FAERS Safety Report 8835385 (Version 2)
Quarter: 2012Q4

REPORT INFORMATION
  Report Type: 
  Country: IT (occurrence: IT)
  Receive Date: 20121011
  Receipt Date: 20121012
  Transmission Date: 20130627
  Serious: Yes (Other)
  Sender: FDA-Public Use
  Company Number: IT-JNJFOC-20121004474

PATIENT
  Sex: Female

DRUGS (3)
  1. DOXORUBICIN [Suspect]
     Indication: BREAST CANCER
     Route: 042
  2. ADRIBLASTINA [Suspect]
     Indication: BREAST CANCER
     Route: 040
  3. PACLITAXEL [Suspect]
     Indication: BREAST CANCER
     Dosage: infusion over 3 hours given at 3-week interval
     Route: 042

REACTIONS (1)
  - Pancytopenia [Unknown]
